FAERS Safety Report 6390548-5 (Version None)
Quarter: 2009Q4

REPORT INFORMATION
  Report Type: 
  Country: None (occurrence: None)
  Receive Date: 20091006
  Receipt Date: 20090929
  Transmission Date: 20100525
  Serious: Yes (Hospitalization)
  Sender: FDA-Public Use
  Company Number: US-GENENTECH-291242

PATIENT
  Sex: Male
  Weight: 97.6 kg

DRUGS (3)
  1. BEVACIZUMAB [Suspect]
     Indication: MALIGNANT MELANOMA
     Dosage: 10 MG/KG, DAYS 1+15
     Route: 042
     Dates: start: 20090415, end: 20090811
  2. CARBOPLATIN [Suspect]
     Indication: MALIGNANT MELANOMA
     Dosage: 6 AUC, UNK
     Route: 042
     Dates: start: 20090415, end: 20090811
  3. ABRAXANE [Suspect]
     Indication: MALIGNANT MELANOMA
     Dosage: 100 MG/M2, DAYS1,8,15
     Route: 042
     Dates: start: 20090415, end: 20090811

REACTIONS (2)
  - PANCREATITIS [None]
  - PLEURAL EFFUSION [None]
